FAERS Safety Report 4377799-6 (Version None)
Quarter: 2004Q2

REPORT INFORMATION
  Report Type: 
  Country: None (occurrence: None)
  Receive Date: 20040614
  Receipt Date: 20040614
  Transmission Date: 20050107
  Serious: Yes (Hospitalization, Other)
  Sender: FDA-Public Use
  Company Number: None

PATIENT
  Age: 46 Year
  Sex: Female

DRUGS (4)
  1. VIOXX [Suspect]
     Dosage: 2 TABS DAILY OUTPATIENT
  2. EXCEDRIN (MIGRAINE) [Concomitant]
  3. SUBOXONE [Concomitant]
  4. MEDROL [Concomitant]

REACTIONS (1)
  - UPPER GASTROINTESTINAL HAEMORRHAGE [None]
